FAERS Safety Report 5986498-6 (Version None)
Quarter: 2008Q4

REPORT INFORMATION
  Report Type: 
  Country: None (occurrence: None)
  Receive Date: 20081209
  Receipt Date: 20081201
  Transmission Date: 20090506
  Serious: Yes (Hospitalization)
  Sender: FDA-Public Use
  Company Number: US-JNJFOC-20081200651

PATIENT
  Sex: Female
  Weight: 56.7 kg

DRUGS (4)
  1. REMICADE [Suspect]
     Dosage: 3 VIALS
     Route: 042
  2. REMICADE [Suspect]
     Indication: CROHN'S DISEASE
     Dosage: RECEIVED 3 TREATMENTS
     Route: 042
  3. BENADRYL [Concomitant]
     Indication: PREMEDICATION
  4. ASACOL [Concomitant]

REACTIONS (2)
  - ARTHRALGIA [None]
  - ELECTROCARDIOGRAM ABNORMAL [None]
